FAERS Safety Report 10398054 (Version 1)
Quarter: 2014Q3

REPORT INFORMATION
  Report Type: Spontaneous
  Country: GB (occurrence: None)
  Receive Date: 20140818
  Receipt Date: 20140818
  Transmission Date: 20150326
  Serious: Yes (Other)
  Sender: FDA-Public Use
  Company Number: 2014218807

PATIENT
  Age: 7 Decade
  Sex: Female

DRUGS (3)
  1. DIPENTUM [Suspect]
     Active Substance: OLSALAZINE SODIUM
     Dosage: 1 ML, UNK
  2. FRAGMIN [Suspect]
     Active Substance: DALTEPARIN SODIUM
     Dosage: 10000 IU, SOLUTION FOR INJECTION , UNK
  3. PREDNISOLONE. [Concomitant]
     Active Substance: PREDNISOLONE

REACTIONS (3)
  - Colitis ulcerative [None]
  - Cholangitis sclerosing [None]
  - Flatulence [None]
